FAERS Safety Report 9714232 (Version 3)
Quarter: 2015Q3

REPORT INFORMATION
  Report Type: Spontaneous
  Country: US (occurrence: US)
  Receive Date: 20131126
  Receipt Date: 20150803
  Transmission Date: 20151125
  Serious: No
  Sender: FDA-Public Use
  Company Number: US-GILEAD-2008-0018907

PATIENT
  Age: 64 Year
  Sex: Female
  Weight: 131.54 kg

DRUGS (12)
  1. PRILOSEC [Concomitant]
     Active Substance: OMEPRAZOLE MAGNESIUM
     Route: 048
  2. ASMANEX [Concomitant]
     Active Substance: MOMETASONE FUROATE
     Route: 055
  3. POTASSIUM [Concomitant]
     Active Substance: POTASSIUM
     Route: 048
  4. TORSEMIDE. [Concomitant]
     Active Substance: TORSEMIDE
     Route: 048
  5. COUMADIN [Concomitant]
     Active Substance: WARFARIN SODIUM
     Route: 048
  6. ALBUTEROL INHALER [Concomitant]
     Active Substance: ALBUTEROL
     Route: 055
  7. REVATIO [Concomitant]
     Active Substance: SILDENAFIL CITRATE
     Route: 048
  8. LEXAPRO [Concomitant]
     Active Substance: ESCITALOPRAM OXALATE
     Route: 048
  9. LETAIRIS [Suspect]
     Active Substance: AMBRISENTAN
     Indication: COR PULMONALE CHRONIC
     Route: 048
     Dates: start: 20081009, end: 20081107
  10. LORAZEPAM. [Concomitant]
     Active Substance: LORAZEPAM
     Route: 048
  11. SPIRONOLACTONE. [Concomitant]
     Active Substance: SPIRONOLACTONE
     Route: 048
  12. ZETIA [Concomitant]
     Active Substance: EZETIMIBE
     Route: 048

REACTIONS (6)
  - Headache [Unknown]
  - Flushing [Unknown]
  - Swelling [Unknown]
  - Insomnia [Unknown]
  - Palpitations [Unknown]
  - Nasal congestion [Unknown]
